FAERS Safety Report 12166743 (Version 5)
Quarter: 2016Q2

REPORT INFORMATION
  Report Type: Spontaneous
  Country: JP (occurrence: JP)
  Receive Date: 20160310
  Receipt Date: 20160427
  Transmission Date: 20160815
  Serious: Yes (Hospitalization)
  Sender: FDA-Public Use
  Company Number: JP-009507513-1603JPN003177

PATIENT
  Age: 64 Year
  Sex: Male
  Weight: 50 kg

DRUGS (8)
  1. LENDORMIN D [Suspect]
     Active Substance: BROTIZOLAM
     Indication: INSOMNIA
     Dosage: AT THE ONSET OF SLEEPLESSNESS
     Route: 048
     Dates: start: 20150107
  2. DEPAKENE [Concomitant]
     Active Substance: VALPROIC ACID
     Indication: BRAIN INJURY
     Dosage: 400 MG, BID
     Route: 048
     Dates: start: 20111002
  3. LONASEN [Concomitant]
     Active Substance: BLONANSERIN
     Indication: BRAIN INJURY
     Dosage: 4 MG, BID
     Route: 048
     Dates: start: 20141209
  4. AKINETON [Concomitant]
     Active Substance: BIPERIDEN HYDROCHLORIDE
     Indication: BRAIN INJURY
     Dosage: 1 MG, BID
     Route: 048
     Dates: start: 20070723
  5. BELSOMRA [Suspect]
     Active Substance: SUVOREXANT
     Indication: INSOMNIA
     Dosage: 20 MG, QD
     Route: 048
     Dates: start: 20160202, end: 20160225
  6. THYRADIN-S [Concomitant]
     Active Substance: LEVOTHYROXINE
     Dosage: 50 MICROGRAM, QD
     Route: 048
     Dates: start: 20160204
  7. RISPERDAL [Concomitant]
     Active Substance: RISPERIDONE
     Indication: BRAIN INJURY
     Dosage: 2 MG, TID
     Route: 048
     Dates: start: 20110608
  8. LUNESTA [Suspect]
     Active Substance: ESZOPICLONE
     Indication: INSOMNIA
     Dosage: 3 MG, QD (1MG, 2MG)
     Route: 048
     Dates: start: 20110704

REACTIONS (2)
  - Sudden onset of sleep [Recovered/Resolved]
  - Oedema peripheral [Unknown]

NARRATIVE: CASE EVENT DATE: 20160225
